FAERS Safety Report 23542893 (Version 1)
Quarter: 2024Q1

REPORT INFORMATION
  Report Type: Spontaneous
  Country: JP (occurrence: JP)
  Receive Date: 20240220
  Receipt Date: 20240220
  Transmission Date: 20240410
  Serious: Yes (Death)
  Sender: FDA-Public Use
  Company Number: JP-BAUSCH-BL-2024-002709

PATIENT
  Age: 71 Year
  Sex: Female

DRUGS (6)
  1. TARGRETIN [Suspect]
     Active Substance: BEXAROTENE
     Indication: Anaplastic large cell lymphoma T- and null-cell types
     Route: 048
     Dates: start: 20230112, end: 20230228
  2. TARGRETIN [Suspect]
     Active Substance: BEXAROTENE
     Dosage: REDUCED DOSE
     Route: 048
     Dates: start: 20230301
  3. TARGRETIN [Suspect]
     Active Substance: BEXAROTENE
     Route: 048
     Dates: start: 2023, end: 2023
  4. TARGRETIN [Suspect]
     Active Substance: BEXAROTENE
     Route: 048
     Dates: start: 2023, end: 2023
  5. TARGRETIN [Suspect]
     Active Substance: BEXAROTENE
     Route: 048
     Dates: start: 20230723, end: 202311
  6. TARGRETIN [Suspect]
     Active Substance: BEXAROTENE
     Route: 048
     Dates: end: 20240110

REACTIONS (1)
  - Sepsis [Fatal]

NARRATIVE: CASE EVENT DATE: 20240118
